FAERS Safety Report 10917294 (Version 1)
Quarter: 2015Q1

REPORT INFORMATION
  Report Type: Spontaneous
  Country: ES (occurrence: ES)
  Receive Date: 20150316
  Receipt Date: 20150316
  Transmission Date: 20150721
  Serious: Yes (Other)
  Sender: FDA-Public Use
  Company Number: ES-JNJFOC-20150308786

PATIENT
  Age: 34 Year
  Sex: Male

DRUGS (11)
  1. RISPERIDONE. [Concomitant]
     Active Substance: RISPERIDONE
     Indication: CONFUSIONAL STATE
     Route: 065
     Dates: start: 20140526
  2. RISPERIDONE. [Concomitant]
     Active Substance: RISPERIDONE
     Indication: IRRITABILITY
     Route: 065
     Dates: start: 20140526
  3. GABAPENTIN. [Concomitant]
     Active Substance: GABAPENTIN
     Indication: PRODUCT USED FOR UNKNOWN INDICATION
     Route: 065
     Dates: start: 20140114
  4. DEPAKINE [Concomitant]
     Active Substance: VALPROATE SODIUM
     Indication: PRODUCT USED FOR UNKNOWN INDICATION
     Route: 065
     Dates: start: 20140114
  5. FLUDROCORTISONE [Concomitant]
     Active Substance: FLUDROCORTISONE
     Indication: PRODUCT USED FOR UNKNOWN INDICATION
     Route: 065
     Dates: start: 20140116, end: 20140618
  6. RISPERIDONE. [Concomitant]
     Active Substance: RISPERIDONE
     Indication: IRRITABILITY
     Route: 065
     Dates: start: 20140611
  7. DULOXETINE [Concomitant]
     Active Substance: DULOXETINE
     Indication: PRODUCT USED FOR UNKNOWN INDICATION
     Route: 065
     Dates: start: 20140529, end: 20140612
  8. TRAMADOL HYDROCHLORIDE. [Concomitant]
     Active Substance: TRAMADOL HYDROCHLORIDE
     Indication: PRODUCT USED FOR UNKNOWN INDICATION
     Route: 065
     Dates: start: 20140508, end: 20140602
  9. AMITRIPTYLINE [Concomitant]
     Active Substance: AMITRIPTYLINE
     Indication: PRODUCT USED FOR UNKNOWN INDICATION
     Route: 065
     Dates: start: 20140313, end: 20140526
  10. PALEXIA [Suspect]
     Active Substance: TAPENTADOL HYDROCHLORIDE
     Indication: NEURALGIA
     Route: 048
     Dates: start: 20140602, end: 20140617
  11. RISPERIDONE. [Concomitant]
     Active Substance: RISPERIDONE
     Indication: CONFUSIONAL STATE
     Route: 065
     Dates: start: 20140611

REACTIONS (4)
  - Aggression [Recovered/Resolved]
  - Disinhibition [Recovered/Resolved]
  - Hypomania [Recovered/Resolved]
  - Euphoric mood [Recovered/Resolved]

NARRATIVE: CASE EVENT DATE: 20140604
